FAERS Safety Report 8047047-4 (Version None)
Quarter: 2012Q1

REPORT INFORMATION
  Report Type: 
  Country: None (occurrence: None)
  Receive Date: 20120116
  Receipt Date: 20120113
  Transmission Date: 20120608
  Serious: Yes (Death)
  Sender: FDA-Public Use
  Company Number: FR-JNJFOC-20111203574

PATIENT
  Sex: Male

DRUGS (8)
  1. LOXAPINE HCL [Suspect]
     Indication: FOETAL EXPOSURE DURING PREGNANCY
     Route: 064
     Dates: start: 20090220, end: 20090828
  2. LEPTICUR [Suspect]
     Indication: FOETAL EXPOSURE DURING PREGNANCY
     Route: 064
     Dates: start: 20090220, end: 20090828
  3. NOZINAN [Suspect]
     Indication: FOETAL EXPOSURE DURING PREGNANCY
     Route: 064
     Dates: end: 20090828
  4. CLONAZEPAM [Suspect]
     Indication: FOETAL EXPOSURE DURING PREGNANCY
     Route: 064
     Dates: start: 20090623, end: 20090828
  5. CHLORPROMAZINE HCL [Suspect]
     Indication: FOETAL EXPOSURE DURING PREGNANCY
     Route: 064
     Dates: start: 20090623, end: 20090828
  6. TEGRETOL [Concomitant]
     Indication: FOETAL EXPOSURE DURING PREGNANCY
     Dosage: WITHDRAWN BEFORE 23-JUN-2009 (20 WEEKS OF AMENORRHEA)
     Route: 064
     Dates: start: 20090220
  7. HALDOL [Suspect]
     Indication: FOETAL EXPOSURE DURING PREGNANCY
     Route: 064
     Dates: end: 20090828
  8. DEPAKOTE [Concomitant]
     Indication: FOETAL EXPOSURE DURING PREGNANCY
     Route: 064

REACTIONS (5)
  - CHORIOAMNIONITIS [None]
  - FOETAL DEATH [None]
  - OEDEMA [None]
  - BONE DEFORMITY [None]
  - PLACENTAL INFARCTION [None]
